FAERS Safety Report 21762860 (Version 2)
Quarter: 2024Q3

REPORT INFORMATION
  Report Type: Spontaneous
  Country: US (occurrence: US)
  Receive Date: 20221221
  Receipt Date: 20240916
  Transmission Date: 20241017
  Serious: No
  Sender: BIOGEN
  Company Number: US-BIOGEN-2022BI01176005

PATIENT
  Sex: Female

DRUGS (1)
  1. SPINRAZA [Suspect]
     Active Substance: NUSINERSEN
     Indication: Spinal muscular atrophy
     Dosage: TOTAL DOSES RECEIVED 14
     Route: 050
     Dates: start: 20200930, end: 20240521

REACTIONS (6)
  - Polyneuropathy [Unknown]
  - Hypersomnia [Unknown]
  - Investigation abnormal [Unknown]
  - Arthropathy [Unknown]
  - Muscle atrophy [Unknown]
  - Arthritis [Unknown]

NARRATIVE: CASE EVENT DATE: 20220101
